FAERS Safety Report 6556464-0 (Version None)
Quarter: 2010Q1

REPORT INFORMATION
  Report Type: 
  Country: None (occurrence: None)
  Receive Date: 20100125
  Receipt Date: 20100113
  Transmission Date: 20100710
  Serious: Yes (Life-Threatening, Other)
  Sender: FDA-Public Use
  Company Number: 475099

PATIENT
  Age: 17 Year
  Sex: Male
  Weight: 68 kg

DRUGS (2)
  1. MORPHINE SULFATE [Suspect]
     Indication: DRUG USE FOR UNKNOWN INDICATION
     Dosage: 2.5MG, ONCE, INTRAVENOUS
     Route: 042
  2. KETAMINE HCL [Suspect]
     Indication: DRUG USE FOR UNKNOWN INDICATION
     Dosage: 68MG, ONCE, INTRAVENOUS
     Route: 042

REACTIONS (5)
  - HYPOVENTILATION [None]
  - OXYGEN SATURATION DECREASED [None]
  - RESPIRATORY RATE DECREASED [None]
  - STRIDOR [None]
  - URTICARIA [None]
